FAERS Safety Report 14538574 (Version 2)
Quarter: 2018Q1

REPORT INFORMATION
  Report Type: Spontaneous
  Country: US (occurrence: US)
  Receive Date: 20180216
  Receipt Date: 20180221
  Transmission Date: 20180509
  Serious: Yes (Death, Other)
  Sender: FDA-Public Use
  Company Number: US-AMGEN-USASP2018020820

PATIENT
  Age: 84 Year
  Sex: Male

DRUGS (1)
  1. ENBREL [Suspect]
     Active Substance: ETANERCEPT
     Indication: RHEUMATOID ARTHRITIS
     Dosage: UNK UNK, Q3WK
     Route: 065

REACTIONS (7)
  - Macular degeneration [Unknown]
  - Hypertension [Unknown]
  - Ill-defined disorder [Unknown]
  - Death [Fatal]
  - Bone lesion [Unknown]
  - Product use issue [Unknown]
  - Glaucoma [Unknown]

NARRATIVE: CASE EVENT DATE: 20161016
